FAERS Safety Report 9882370 (Version 1)
Quarter: 2014Q1

REPORT INFORMATION
  Report Type: Spontaneous
  Country: FR (occurrence: FR)
  Receive Date: 20140207
  Receipt Date: 20140207
  Transmission Date: 20141002
  Serious: Yes (Death)
  Sender: FDA-Public Use
  Company Number: FR-GLAXOSMITHKLINE-B0965107A

PATIENT
  Age: 83 Year
  Sex: Male

DRUGS (12)
  1. LAMICTAL [Suspect]
     Indication: EPILEPSY
     Route: 048
     Dates: end: 20131024
  2. ROCEPHINE [Suspect]
     Indication: LUNG INFECTION
     Dosage: 1G PER DAY
     Route: 042
     Dates: start: 201309, end: 20130907
  3. TAVANIC [Concomitant]
     Indication: LUNG INFECTION
     Route: 048
     Dates: start: 20130907, end: 20130918
  4. SEROPLEX [Concomitant]
     Indication: PRODUCT USED FOR UNKNOWN INDICATION
     Route: 048
     Dates: end: 20131009
  5. PREVISCAN (FLUINDIONE) [Concomitant]
     Indication: PRODUCT USED FOR UNKNOWN INDICATION
     Route: 048
     Dates: end: 20131012
  6. SOLUPRED [Concomitant]
     Indication: PRODUCT USED FOR UNKNOWN INDICATION
     Route: 048
     Dates: end: 20130930
  7. KALEORID LP [Concomitant]
     Indication: PRODUCT USED FOR UNKNOWN INDICATION
     Dosage: 1000MG PER DAY
     Route: 048
     Dates: end: 20130930
  8. BRICANYL [Concomitant]
     Indication: PRODUCT USED FOR UNKNOWN INDICATION
     Route: 055
  9. ATROVENT [Concomitant]
     Indication: PRODUCT USED FOR UNKNOWN INDICATION
     Route: 055
  10. INEXIUM [Concomitant]
     Indication: PRODUCT USED FOR UNKNOWN INDICATION
     Route: 048
  11. LASILIX [Concomitant]
     Indication: PRODUCT USED FOR UNKNOWN INDICATION
     Route: 048
     Dates: end: 20130930
  12. OXYGEN [Concomitant]
     Route: 065
     Dates: start: 201309

REACTIONS (4)
  - Rash maculo-papular [Fatal]
  - Septic rash [Fatal]
  - Renal failure acute [Fatal]
  - Dehydration [Fatal]
